FAERS Safety Report 4405892-8 (Version None)
Quarter: 2004Q3

REPORT INFORMATION
  Report Type: 
  Country: None (occurrence: None)
  Receive Date: 20040716
  Receipt Date: 20040706
  Transmission Date: 20050211
  Serious: Yes (Hospitalization)
  Sender: FDA-Public Use
  Company Number: BE-JNJFOC-20040701131

PATIENT
  Age: 69 Year
  Sex: Female

DRUGS (14)
  1. INFLIXIMAB             BLINDED (INFLIXIMAB RECOMBINANT) [Suspect]
     Indication: RHEUMATOID ARTHRITIS
     Dosage: INTRAVENOUS
     Route: 042
     Dates: start: 20031103, end: 20031103
  2. INFLIXIMAB             BLINDED (INFLIXIMAB RECOMBINANT) [Suspect]
     Indication: RHEUMATOID ARTHRITIS
     Dosage: INTRAVENOUS
     Route: 042
     Dates: start: 20031119, end: 20031119
  3. INFLIXIMAB             BLINDED (INFLIXIMAB RECOMBINANT) [Suspect]
     Indication: RHEUMATOID ARTHRITIS
     Dosage: INTRAVENOUS
     Route: 042
     Dates: start: 20031217, end: 20031217
  4. INFLIXIMAB             BLINDED (INFLIXIMAB RECOMBINANT) [Suspect]
     Indication: RHEUMATOID ARTHRITIS
     Dosage: INTRAVENOUS
     Route: 042
     Dates: start: 20040213, end: 20040213
  5. INFLIXIMAB             BLINDED (INFLIXIMAB RECOMBINANT) [Suspect]
     Indication: RHEUMATOID ARTHRITIS
     Dosage: INTRAVENOUS
     Route: 042
     Dates: start: 20040408, end: 20040408
  6. METHOTREXATE [Suspect]
     Indication: RHEUMATOID ARTHRITIS
     Dosage: 20 MG/G
     Dates: start: 20031103
  7. LEVOTHYROXINE SODIUM [Concomitant]
  8. SERETIDE DISKUS (SERETIDE MITE) [Concomitant]
  9. LOMUDAL (CROMOGLICATE SODIUM) [Concomitant]
  10. FOLIC ACID [Concomitant]
  11. CELEBREX [Concomitant]
  12. THEOLAIR-SR [Concomitant]
  13. SINGULAIR [Concomitant]
  14. CACIT D3 (LEKOVIT CA) [Concomitant]

REACTIONS (2)
  - CONDITION AGGRAVATED [None]
  - LUNG DISORDER [None]
